FAERS Safety Report 8776996 (Version 2)
Quarter: 2012Q4

REPORT INFORMATION
  Report Type: 
  Country: JP (occurrence: JP)
  Receive Date: 20120911
  Receipt Date: 20121001
  Transmission Date: 20130627
  Serious: Yes (Hospitalization)
  Sender: FDA-Public Use
  Company Number: JP-GLAXOSMITHKLINE-B0828746A

PATIENT
  Age: 83 None
  Sex: Female
  Weight: 60 kg

DRUGS (2)
  1. ZOVIRAX [Suspect]
     Indication: HERPES ZOSTER
     Dosage: 250MG Twice per day
     Route: 042
     Dates: start: 20120820, end: 20120822
  2. VALTREX [Suspect]
     Indication: HERPES ZOSTER
     Dosage: 1000MG Three times per day
     Route: 048
     Dates: start: 20120820, end: 20120822

REACTIONS (19)
  - Renal failure acute [Recovered/Resolved]
  - Cerebellar ataxia [Recovered/Resolved]
  - Decreased appetite [Unknown]
  - Postural reflex impairment [Unknown]
  - Dizziness [Unknown]
  - Dyslalia [Unknown]
  - Cerebellar syndrome [Unknown]
  - Ataxia [Unknown]
  - Dysarthria [Unknown]
  - Encephalopathy [Unknown]
  - Blood urea increased [Unknown]
  - Blood creatinine increased [Unknown]
  - Blood uric acid increased [Unknown]
  - Glomerular filtration rate decreased [Unknown]
  - Blood calcium decreased [Unknown]
  - Blood sodium decreased [Unknown]
  - Blood potassium decreased [Unknown]
  - Blood chloride decreased [Unknown]
  - Toxicity to various agents [Unknown]
